FAERS Safety Report 13177092 (Version 1)
Quarter: 2017Q1

REPORT INFORMATION
  Report Type: Report from Study
  Country: US (occurrence: US)
  Receive Date: 20170201
  Receipt Date: 20170201
  Transmission Date: 20170428
  Serious: No
  Sender: FDA-Public Use
  Company Number: US-EXELIXIS-CABO-16007078

PATIENT
  Age: 50 Year
  Sex: Female

DRUGS (3)
  1. LEVOTHYROXINE. [Concomitant]
     Active Substance: LEVOTHYROXINE
  2. COMETRIQ [Suspect]
     Active Substance: CABOZANTINIB S-MALATE
     Dosage: 60 MG, QD
     Route: 048
     Dates: start: 2016, end: 20161021
  3. COMETRIQ [Suspect]
     Active Substance: CABOZANTINIB S-MALATE
     Indication: THYROID CANCER
     Dosage: 140 MG, QD
     Route: 048
     Dates: start: 20160907

REACTIONS (17)
  - Fatigue [Not Recovered/Not Resolved]
  - Dysphonia [Unknown]
  - Weight decreased [Unknown]
  - Haemorrhage [Unknown]
  - Insomnia [Unknown]
  - Protein urine present [Unknown]
  - Malaise [Unknown]
  - Gait disturbance [Unknown]
  - Palmar-plantar erythrodysaesthesia syndrome [Unknown]
  - Alopecia [Unknown]
  - Lip swelling [Unknown]
  - Diarrhoea [Not Recovered/Not Resolved]
  - Hypersomnia [Unknown]
  - Oral pain [Unknown]
  - Dysstasia [Unknown]
  - Decreased appetite [Unknown]
  - Renal function test abnormal [Unknown]

NARRATIVE: CASE EVENT DATE: 20160907
